FAERS Safety Report 8087578-4 (Version None)
Quarter: 2012Q1

REPORT INFORMATION
  Report Type: 
  Country: None (occurrence: None)
  Receive Date: 20120128
  Receipt Date: 20110524
  Transmission Date: 20120608
  Serious: No
  Sender: FDA-Public Use
  Company Number: US-ABBOTT-11P-163-0728248-00

PATIENT
  Age: 61 Year
  Sex: Female

DRUGS (4)
  1. ZOLPIDEM TARTRATE [Concomitant]
     Indication: INSOMNIA
  2. HYDROCODONE BITARTRATE [Concomitant]
     Indication: PAIN
     Dosage: 5-325 MG 1 OR 2 TABLETS AT BEDTIME
  3. HUMIRA [Suspect]
     Indication: CROHN'S DISEASE
     Dosage: LOADING DOSE
     Dates: start: 20110510
  4. ASACOL [Concomitant]
     Indication: PRODUCT USED FOR UNKNOWN INDICATION

REACTIONS (2)
  - INJECTION SITE PAIN [None]
  - INJECTION SITE HAEMORRHAGE [None]
